FAERS Safety Report 15370190 (Version 1)
Quarter: 2018Q3

REPORT INFORMATION
  Report Type: Report from Study
  Country: US (occurrence: US)
  Receive Date: 20180911
  Receipt Date: 20180911
  Transmission Date: 20181010
  Serious: Yes (Other)
  Sender: FDA-Public Use
  Company Number: US-BAYER-2018-167028

PATIENT
  Age: 59 Year
  Sex: Male

DRUGS (2)
  1. STIVARGA [Suspect]
     Active Substance: REGORAFENIB
     Indication: NEOPLASM MALIGNANT
     Dosage: 80 MG DAILY
     Route: 048
     Dates: start: 20180205
  2. STIVARGA [Suspect]
     Active Substance: REGORAFENIB
     Indication: NEOPLASM MALIGNANT
     Dosage: DOSE REDUCTION
     Route: 048

REACTIONS (2)
  - Cytopenia [None]
  - Off label use [None]
